FAERS Safety Report 4287313-1 (Version None)
Quarter: 2004Q1

REPORT INFORMATION
  Report Type: 
  Country: None (occurrence: None)
  Receive Date: 20040205
  Receipt Date: 20040120
  Transmission Date: 20041129
  Serious: Yes (Death, Hospitalization)
  Sender: FDA-Public Use
  Company Number: FR_040103441

PATIENT
  Age: 64 Year
  Sex: Male

DRUGS (12)
  1. GEMZAR [Suspect]
     Indication: LUNG NEOPLASM MALIGNANT
     Dosage: 2500 MG/M2/OTHER
     Dates: start: 20030401, end: 20030512
  2. CISPLATIN [Concomitant]
  3. IRESSA [Concomitant]
  4. KARDEGIC (ACETYLSALICYLATE LYSINE) [Concomitant]
  5. SOPROL (BISOPROLOL FUMARATE) [Concomitant]
  6. CORDARONE [Concomitant]
  7. OMEPRAZOLE [Concomitant]
  8. CLONAZEPAM [Concomitant]
  9. AMITRIPTYLINE HYDROCHLORIDE [Concomitant]
  10. NEURONTIN [Concomitant]
  11. PREDNISOLONE [Concomitant]
  12. MEDIASTINAL RADIOTHERAPY [Concomitant]

REACTIONS (9)
  - ACNE [None]
  - CARDIO-RESPIRATORY ARREST [None]
  - DYSPNOEA [None]
  - NEUROPATHY [None]
  - PERICARDIAL EFFUSION MALIGNANT [None]
  - PERICARDITIS CONSTRICTIVE [None]
  - PNEUMONECTOMY [None]
  - PULMONARY EMBOLISM [None]
  - WEIGHT INCREASED [None]
